FAERS Safety Report 9728143 (Version 1)
Quarter: 2013Q4

REPORT INFORMATION
  Report Type: Spontaneous
  Country: US (occurrence: US)
  Receive Date: 20131204
  Receipt Date: 20131204
  Transmission Date: 20140711
  Serious: Yes (Other)
  Sender: FDA-Public Use
  Company Number: US-ACCORD-020625

PATIENT
  Age: 58 Year
  Sex: Female

DRUGS (2)
  1. DOCETAXEL INJECTION 160 MG/8 ML [Suspect]
     Indication: PRODUCT USED FOR UNKNOWN INDICATION
  2. ZOFRAN [Concomitant]
     Indication: NAUSEA

REACTIONS (4)
  - Flushing [Unknown]
  - Hyperhidrosis [Unknown]
  - Feeling hot [Unknown]
  - Nausea [Unknown]
